FAERS Safety Report 6471047-9 (Version None)
Quarter: 2009Q4

REPORT INFORMATION
  Report Type: 
  Country: None (occurrence: None)
  Receive Date: 20091203
  Receipt Date: 20091123
  Transmission Date: 20100525
  Serious: Yes (Death, Hospitalization, Other)
  Sender: FDA-Public Use
  Company Number: US-PFIZER INC-2009277625

PATIENT
  Age: 87 Year
  Sex: Female

DRUGS (4)
  1. XANAX [Suspect]
     Indication: PARANOIA
     Dosage: 0.25 MG, 4X/DAY
     Dates: start: 20081201
  2. XANAX [Suspect]
     Indication: HALLUCINATION
  3. ARICEPT [Suspect]
     Indication: DEMENTIA ALZHEIMER'S TYPE
     Dosage: 5/10 MG
     Dates: start: 20060701
  4. SEROQUEL [Concomitant]

REACTIONS (7)
  - DEATH [None]
  - DEMENTIA ALZHEIMER'S TYPE [None]
  - FALL [None]
  - HALLUCINATION [None]
  - JOINT DISLOCATION [None]
  - PARANOIA [None]
  - SPINAL FRACTURE [None]
